FAERS Safety Report 9034464 (Version 4)
Quarter: 2013Q1

REPORT INFORMATION
  Report Type: Report from Study
  Country: JP (occurrence: JP)
  Receive Date: 20130128
  Receipt Date: 20130321
  Transmission Date: 20140127
  Serious: Yes (Hospitalization)
  Sender: FDA-Public Use
  Company Number: JP-MERCK-1301JPN009763

PATIENT
  Age: 47 Year
  Sex: Female
  Weight: 82.9 kg

DRUGS (6)
  1. SITAGLIPTIN PHOSPHATE [Suspect]
     Indication: TYPE 2 DIABETES MELLITUS
     Dosage: 50MG,DAILY
     Route: 048
     Dates: start: 20120219, end: 20120516
  2. SITAGLIPTIN PHOSPHATE [Suspect]
     Dosage: 50MG,DAILY
     Route: 048
     Dates: start: 20120517, end: 20120714
  3. SITAGLIPTIN PHOSPHATE [Suspect]
     Dosage: 100MG,DAILY
     Route: 048
     Dates: start: 20120715, end: 20130110
  4. SITAGLIPTIN PHOSPHATE [Suspect]
     Dosage: 100MG,DAILY
     Route: 048
     Dates: start: 20130125, end: 20130216
  5. GLUFAST [Concomitant]
     Indication: TYPE 2 DIABETES MELLITUS
     Dosage: 30MG,DAILY, MORNING
     Route: 048
     Dates: start: 20111104, end: 20130110
  6. GLUFAST [Concomitant]
     Dosage: 30MG,DAILY, AFTERNOON
     Route: 048
     Dates: start: 20130124

REACTIONS (2)
  - Endometriosis [Recovering/Resolving]
  - Pneumonia mycoplasmal [Recovered/Resolved]
